FAERS Safety Report 7600741-9 (Version None)
Quarter: 2011Q3

REPORT INFORMATION
  Report Type: 
  Country: None (occurrence: None)
  Receive Date: 20110711
  Receipt Date: 20110706
  Transmission Date: 20111222
  Serious: Yes (Other)
  Sender: FDA-Public Use
  Company Number: DE-PFIZER INC-2011152341

PATIENT
  Age: 79 Year
  Sex: Female

DRUGS (1)
  1. ZIPRASIDONE HYDROCHLORIDE [Suspect]
     Dosage: 20 MG, DAILY
     Dates: start: 20090727

REACTIONS (7)
  - MUSCLE RIGIDITY [None]
  - DYSPNOEA [None]
  - PAIN [None]
  - ARRHYTHMIA [None]
  - EYE PRURITUS [None]
  - EAR PAIN [None]
  - GINGIVAL PAIN [None]
